FAERS Safety Report 23394675 (Version 1)
Quarter: 2024Q1

REPORT INFORMATION
  Report Type: Spontaneous
  Country: US (occurrence: US)
  Receive Date: 20240112
  Receipt Date: 20240112
  Transmission Date: 20240409
  Serious: No
  Sender: FDA-Public Use
  Company Number: US-UROGEN PHARMA LTD.-2023-UGN-000090

PATIENT

DRUGS (2)
  1. JELMYTO [Suspect]
     Active Substance: MITOMYCIN
     Indication: Transitional cell cancer of the renal pelvis and ureter
     Dosage: 13CC WHICH EQUATES TO 52MG, ONCE A WEEK (INSTILLATION)
     Dates: start: 20231114, end: 20231114
  2. JELMYTO [Suspect]
     Active Substance: MITOMYCIN
     Dosage: 13CC WHICH EQUATES TO 52MG, ONCE A WEEK (INSTILLATION)
     Dates: start: 20231121, end: 20231121

REACTIONS (3)
  - Hyperhidrosis [Recovered/Resolved]
  - Product storage error [Unknown]
  - Decreased appetite [Recovered/Resolved]

NARRATIVE: CASE EVENT DATE: 20231101
